FAERS Safety Report 5202597-0 (Version None)
Quarter: 2007Q1

REPORT INFORMATION
  Report Type: 
  Country: None (occurrence: None)
  Receive Date: 20070109
  Receipt Date: 20061228
  Transmission Date: 20070707
  Serious: Yes (Death, Life-Threatening)
  Sender: FDA-Public Use
  Company Number: US-PFIZER INC-2006127911

PATIENT
  Sex: Female
  Weight: 68 kg

DRUGS (2)
  1. DOSTINEX [Suspect]
     Indication: PROLACTINOMA
  2. CABERGOLINE [Suspect]
     Indication: PROLACTINOMA

REACTIONS (3)
  - GALACTORRHOEA [None]
  - LACTATION DISORDER [None]
  - ROAD TRAFFIC ACCIDENT [None]
